FAERS Safety Report 10103408 (Version 2)
Quarter: 2014Q2

REPORT INFORMATION
  Report Type: Report from Study
  Country: ES (occurrence: ES)
  Receive Date: 20140424
  Receipt Date: 20140424
  Transmission Date: 20141212
  Serious: Yes (Other)
  Sender: FDA-Public Use
  Company Number: ES-JNJFOC-20120308453

PATIENT
  Sex: 0

DRUGS (4)
  1. ETRAVIRINE [Suspect]
     Indication: HIV INFECTION
     Route: 048
  2. DARUNAVIR [Suspect]
     Indication: HIV INFECTION
     Route: 048
  3. KIVEXA [Suspect]
     Indication: HIV INFECTION
     Route: 065
  4. TRUVADA [Suspect]
     Indication: HIV INFECTION
     Route: 065

REACTIONS (7)
  - Neurological symptom [Unknown]
  - Toxic skin eruption [Unknown]
  - Gastrointestinal disorder [Unknown]
  - Gastrointestinal toxicity [Unknown]
  - Neuropathy peripheral [Unknown]
  - Rash [Unknown]
  - Swelling [Unknown]
